FAERS Safety Report 8876088 (Version 1)
Quarter: 2012Q4

REPORT INFORMATION
  Report Type: 
  Country: US (occurrence: US)
  Receive Date: 20121023
  Receipt Date: 20121023
  Transmission Date: 20130627
  Serious: Yes (Death, Hospitalization, Other)
  Sender: FDA-Public Use
  Company Number: US-ROXANE LABORATORIES, INC.-2012-RO-02041RO

PATIENT
  Age: 15 Year
  Sex: Male

DRUGS (6)
  1. PREDNISONE [Suspect]
     Indication: IMMUNOSUPPRESSANT DRUG THERAPY
  2. MYCOPHENOLATE MOFETIL [Suspect]
     Indication: IMMUNOSUPPRESSANT DRUG THERAPY
  3. TACROLIMUS [Suspect]
     Indication: IMMUNOSUPPRESSANT DRUG THERAPY
  4. RAPAMYCIN [Suspect]
     Indication: IMMUNOSUPPRESSANT DRUG THERAPY
  5. ATORVASTATIN [Suspect]
     Indication: SARCOIDOSIS
  6. ALENDRONATE [Suspect]
     Indication: SARCOIDOSIS

REACTIONS (10)
  - Haemorrhage [Fatal]
  - Aortic calcification [Unknown]
  - Coronary ostial stenosis [Unknown]
  - Sarcoidosis [Unknown]
  - Growth retardation [Unknown]
  - Hypothyroidism [Unknown]
  - Nephrocalcinosis [Unknown]
  - Kidney fibrosis [Unknown]
  - Glomerulosclerosis [Unknown]
  - Osteopenia [Unknown]
